FAERS Safety Report 9660634 (Version 1)
Quarter: 2013Q4

REPORT INFORMATION
  Report Type: Spontaneous
  Country: US (occurrence: US)
  Receive Date: 20131031
  Receipt Date: 20131031
  Transmission Date: 20140711
  Serious: No
  Sender: FDA-Public Use
  Company Number: US-PFIZER INC-2013311515

PATIENT
  Age: 67 Year
  Sex: Female
  Weight: 74.83 kg

DRUGS (4)
  1. LYRICA [Suspect]
     Indication: NEURALGIA
     Dosage: 100 MG, 3X/DAY
  2. LYRICA [Suspect]
     Indication: BURNING SENSATION
     Dosage: 150 MG, 3X/DAY
     Dates: start: 2013
  3. LYRICA [Suspect]
     Indication: HYPOAESTHESIA
     Dosage: 100 MG, 3X/DAY
  4. LYRICA [Suspect]
     Indication: PARAESTHESIA

REACTIONS (4)
  - Muscular weakness [Unknown]
  - Feeling cold [Unknown]
  - Hypoaesthesia [Unknown]
  - Drug ineffective [Unknown]
